FAERS Safety Report 8190857-3 (Version None)
Quarter: 2012Q1

REPORT INFORMATION
  Report Type: 
  Country: None (occurrence: None)
  Receive Date: 20120307
  Receipt Date: 20120301
  Transmission Date: 20120608
  Serious: Yes (Other)
  Sender: FDA-Public Use
  Company Number: US-MERCK-1203USA00286

PATIENT
  Age: 63 Year
  Sex: Female

DRUGS (1)
  1. JANUVIA [Suspect]
     Indication: DIABETES MELLITUS
     Route: 048
     Dates: start: 20101201, end: 20100101

REACTIONS (6)
  - URTICARIA [None]
  - SWELLING FACE [None]
  - BLINDNESS [None]
  - HAEMORRHAGE [None]
  - HYPERHIDROSIS [None]
  - RASH [None]
